FAERS Safety Report 14264648 (Version 2)
Quarter: 2017Q4

REPORT INFORMATION
  Report Type: Report from Study
  Country: CL (occurrence: CL)
  Receive Date: 20171208
  Receipt Date: 20171208
  Transmission Date: 20180321
  Serious: Yes (Hospitalization, Other)
  Sender: FDA-Public Use
  Company Number: CL-TEVA-2017-CL-831318

PATIENT
  Age: 12 Year
  Sex: Male

DRUGS (8)
  1. CYCLOPHOSPHAMIDE. [Suspect]
     Active Substance: CYCLOPHOSPHAMIDE
     Dosage: 40 MG/KG DAILY;
     Route: 065
  2. METHYLPREDNISOLONE. [Suspect]
     Active Substance: METHYLPREDNISOLONE
     Dosage: 1 MG/KG DAILY;
     Route: 065
  3. METHOTREXATE. [Suspect]
     Active Substance: METHOTREXATE
     Indication: PROPHYLAXIS AGAINST GRAFT VERSUS HOST DISEASE
     Dosage: INITIAL FREQUENCY NOT SPECIFIED
     Route: 065
  4. CICLOSPORIN [Suspect]
     Active Substance: CYCLOSPORINE
     Indication: PROPHYLAXIS AGAINST GRAFT VERSUS HOST DISEASE
     Route: 065
  5. MEROPENEM. [Concomitant]
     Active Substance: MEROPENEM
     Route: 065
  6. IMMUNE GLOBULIN [Concomitant]
     Active Substance: HUMAN IMMUNOGLOBULIN G
     Route: 065
  7. METHOTREXATE. [Suspect]
     Active Substance: METHOTREXATE
     Indication: CHRONIC GRAFT VERSUS HOST DISEASE
     Dosage: ADMINISTERED WEEKLY
     Route: 065
  8. VANCOMYCIN [Concomitant]
     Active Substance: VANCOMYCIN
     Route: 065

REACTIONS (7)
  - Lower respiratory tract infection [Recovered/Resolved]
  - Respiratory syncytial virus infection [Recovering/Resolving]
  - Upper respiratory tract infection [Recovered/Resolved]
  - Cytomegalovirus chorioretinitis [Unknown]
  - Bacterial infection [Unknown]
  - Pneumonia [Recovered/Resolved]
  - Cytomegalovirus infection [Unknown]
